FAERS Safety Report 7960911-7 (Version None)
Quarter: 2011Q4

REPORT INFORMATION
  Report Type: 
  Country: None (occurrence: None)
  Receive Date: 20111201
  Receipt Date: 20111123
  Transmission Date: 20120403
  Serious: Yes (Hospitalization)
  Sender: FDA-Public Use
  Company Number: 1118115

PATIENT
  Age: 50 Year
  Sex: Female

DRUGS (9)
  1. VINCRISTINE SULFATE [Suspect]
     Indication: ACUTE LYMPHOCYTIC LEUKAEMIA
     Dosage: NOT REPORTED
  2. ELSPAR [Suspect]
     Indication: ACUTE LYMPHOCYTIC LEUKAEMIA
     Dosage: NOT REPORTED
  3. ETOPOSIDE [Suspect]
     Indication: ACUTE LYMPHOCYTIC LEUKAEMIA
     Dosage: NOT REPORTED
  4. PREDNISONE TAB [Suspect]
     Indication: ACUTE LYMPHOCYTIC LEUKAEMIA
     Dosage: NOT REPORTED
  5. CYCLOPHOSPHAMIDE [Suspect]
     Indication: ACUTE LYMPHOCYTIC LEUKAEMIA
     Dosage: NOT REPORTED
  6. CYTARABINE [Suspect]
     Indication: ACUTE LYMPHOCYTIC LEUKAEMIA
     Dosage: NOT REPORTED
  7. METHOTREXATE [Suspect]
     Indication: ACUTE LYMPHOCYTIC LEUKAEMIA
     Dosage: NOT REPORTED, INTRATHECAL
  8. MITOXANTRONE HYDROCHLORIDE [Suspect]
     Indication: ACUTE LYMPHOCYTIC LEUKAEMIA
     Dosage: NOT REPORTED
  9. (THERAPEUTIC RADIOPHARMACEUTICALS) [Suspect]
     Indication: ACUTE LYMPHOCYTIC LEUKAEMIA
     Dosage: NOT REPORTED

REACTIONS (23)
  - DIARRHOEA [None]
  - BLOOD CREATININE INCREASED [None]
  - BILE DUCT CANCER [None]
  - RASH [None]
  - TOXICITY TO VARIOUS AGENTS [None]
  - BLOOD UREA INCREASED [None]
  - OSTEOSCLEROSIS [None]
  - METASTASES TO LUNG [None]
  - METASTASES TO STOMACH [None]
  - CONGESTIVE CARDIOMYOPATHY [None]
  - RENAL MASS [None]
  - CARDIOTOXICITY [None]
  - RENAL CYST [None]
  - METASTASES TO LIVER [None]
  - HEPATIC CIRRHOSIS [None]
  - COLONIC POLYP [None]
  - CARDIAC FAILURE CONGESTIVE [None]
  - RENAL IMPAIRMENT [None]
  - PLEURAL EFFUSION [None]
  - NEUROPATHY PERIPHERAL [None]
  - THROMBOCYTOPENIA [None]
  - ACUTE LYMPHOCYTIC LEUKAEMIA RECURRENT [None]
  - BONE MARROW TRANSPLANT [None]
